FAERS Safety Report 5425953-4 (Version None)
Quarter: 2007Q3

REPORT INFORMATION
  Report Type: 
  Country: None (occurrence: None)
  Receive Date: 20070824
  Receipt Date: 20070824
  Transmission Date: 20080115
  Serious: Yes (Life-Threatening)
  Sender: FDA-Public Use
  Company Number: None

PATIENT
  Age: 38 Year
  Sex: Male
  Weight: 79.4 kg

DRUGS (6)
  1. HEPARIN [Suspect]
     Indication: PROPHYLAXIS
     Dosage: 5000 UNITS SQ Q8?
     Route: 058
     Dates: start: 20070126, end: 20070130
  2. PHENYTOIN [Concomitant]
  3. RANITIDINE [Concomitant]
  4. INSULIN [Concomitant]
  5. DEXAMETHASONE 0.5MG TAB [Concomitant]
  6. LEVETIRACETAM [Concomitant]

REACTIONS (3)
  - ACTIVATED PARTIAL THROMBOPLASTIN TIME SHORTENED [None]
  - EXTRADURAL HAEMATOMA [None]
  - MENTAL STATUS CHANGES POSTOPERATIVE [None]
